FAERS Safety Report 10146944 (Version 1)
Quarter: 2014Q2

REPORT INFORMATION
  Report Type: Spontaneous
  Country: US (occurrence: US)
  Receive Date: 20140501
  Receipt Date: 20140501
  Transmission Date: 20141212
  Serious: Yes (Hospitalization)
  Sender: FDA-Public Use
  Company Number: US-GLAXOSMITHKLINE-A1070630A

PATIENT
  Age: 62 Year
  Sex: Male

DRUGS (10)
  1. ADVAIR [Suspect]
     Indication: ASTHMA
     Dosage: 1PUFF TWICE PER DAY
     Route: 055
     Dates: start: 201204
  2. SPIRIVA [Concomitant]
  3. PRO-AIR [Concomitant]
  4. MULTAQ [Concomitant]
  5. DILTIAZEM [Concomitant]
  6. HCTZ [Concomitant]
  7. LISINOPRIL [Concomitant]
  8. UNKNOWN MEDICATION [Concomitant]
  9. PROGESTERONE [Concomitant]
  10. ASPIRIN [Concomitant]

REACTIONS (9)
  - Lung infection [Recovering/Resolving]
  - Productive cough [Recovering/Resolving]
  - Dysphonia [Recovering/Resolving]
  - Bedridden [Recovering/Resolving]
  - Oxygen saturation decreased [Recovering/Resolving]
  - Cough [Recovering/Resolving]
  - Dyspnoea [Recovering/Resolving]
  - Pyrexia [Recovering/Resolving]
  - Malaise [Recovering/Resolving]
